FAERS Safety Report 16640993 (Version 3)
Quarter: 2019Q4

REPORT INFORMATION
  Report Type: Report from Study
  Country: None (occurrence: US)
  Receive Date: 20190729
  Receipt Date: 20191111
  Transmission Date: 20200122
  Serious: Yes (Other)
  Sender: FDA-Public Use
  Company Number: US-ABBVIE-19K-163-2787505-00

PATIENT
  Age: 56 Year
  Sex: Male

DRUGS (1)
  1. HUMIRA [Suspect]
     Active Substance: ADALIMUMAB
     Indication: PSORIASIS
     Route: 058

REACTIONS (7)
  - Atrial fibrillation [Unknown]
  - Arthralgia [Recovering/Resolving]
  - Rash erythematous [Not Recovered/Not Resolved]
  - Psoriasis [Not Recovered/Not Resolved]
  - Drug ineffective [Unknown]
  - Pain in extremity [Recovering/Resolving]
  - Benign neoplasm [Recovering/Resolving]

NARRATIVE: CASE EVENT DATE: 201908
